FAERS Safety Report 8560361-9 (Version None)
Quarter: 2012Q3

REPORT INFORMATION
  Report Type: 
  Country: None (occurrence: None)
  Receive Date: 20120802
  Receipt Date: 20120727
  Transmission Date: 20120928
  Serious: Yes (Death)
  Sender: FDA-Public Use
  Company Number: GB-ROCHE-1094428

PATIENT
  Age: 55 Year
  Sex: Male
  Weight: 100 kg

DRUGS (1)
  1. ORLISTAT [Suspect]
     Indication: PRODUCT USED FOR UNKNOWN INDICATION
     Route: 048
     Dates: start: 20111001

REACTIONS (2)
  - DEEP VEIN THROMBOSIS [None]
  - PANCREATIC CARCINOMA [None]
